FAERS Safety Report 13803499 (Version 2)
Quarter: 2017Q3

REPORT INFORMATION
  Report Type: Spontaneous
  Country: US (occurrence: US)
  Receive Date: 20170728
  Receipt Date: 20170817
  Transmission Date: 20171127
  Serious: Yes (Other)
  Sender: FDA-Public Use
  Company Number: US-JNJFOC-20170719960

PATIENT
  Sex: Female
  Weight: 77.11 kg

DRUGS (2)
  1. DURAGESIC [Suspect]
     Active Substance: FENTANYL
     Indication: PAIN
     Route: 062
     Dates: start: 2017
  2. DURAGESIC [Suspect]
     Active Substance: FENTANYL
     Indication: PAIN
     Route: 062
     Dates: end: 2017

REACTIONS (11)
  - Therapeutic response increased [Unknown]
  - Malaise [Unknown]
  - Drug administered at inappropriate site [Unknown]
  - Cerebrovascular accident [Unknown]
  - Ill-defined disorder [Unknown]
  - Drug dose omission [Unknown]
  - Hypokinesia [Unknown]
  - Product adhesion issue [Unknown]
  - Pulmonary embolism [Unknown]
  - Systemic lupus erythematosus [Unknown]
  - Thrombosis [Unknown]
